FAERS Safety Report 7521930-8 (Version None)
Quarter: 2011Q2

REPORT INFORMATION
  Report Type: 
  Country: None (occurrence: None)
  Receive Date: 20110603
  Receipt Date: 20110520
  Transmission Date: 20111010
  Serious: Yes (Hospitalization)
  Sender: FDA-Public Use
  Company Number: US-ELI_LILLY_AND_COMPANY-US201105006974

PATIENT
  Sex: Female

DRUGS (5)
  1. VITAMIN D [Concomitant]
  2. FORTEO [Suspect]
     Indication: OSTEOPOROSIS
     Dosage: 20 UG, QD
  3. BUSPIRONE HCL [Concomitant]
     Indication: EPILEPSY
  4. PHENOBARBITAL TAB [Concomitant]
     Indication: EPILEPSY
  5. DILANTIN [Concomitant]
     Indication: EPILEPSY

REACTIONS (14)
  - PAIN IN EXTREMITY [None]
  - NAUSEA [None]
  - HAEMORRHAGE [None]
  - LIMB DISCOMFORT [None]
  - BLOOD PRESSURE INCREASED [None]
  - BODY TEMPERATURE INCREASED [None]
  - BACK PAIN [None]
  - PAIN [None]
  - OEDEMA PERIPHERAL [None]
  - CONTUSION [None]
  - GAIT DISTURBANCE [None]
  - ASTHENIA [None]
  - RENAL DISORDER [None]
  - ABDOMINAL PAIN UPPER [None]
